FAERS Safety Report 6504501-1 (Version None)
Quarter: 2009Q4

REPORT INFORMATION
  Report Type: 
  Country: None (occurrence: None)
  Receive Date: 20091215
  Receipt Date: 20091204
  Transmission Date: 20100525
  Serious: Yes (Other)
  Sender: FDA-Public Use
  Company Number: 2009AC000149

PATIENT
  Age: 56 Year
  Sex: Male

DRUGS (18)
  1. DIGOXIN [Suspect]
     Dosage: 0.125 MG; PO
     Route: 048
     Dates: start: 19981001, end: 20080401
  2. ASACOL [Concomitant]
  3. CLOTRIMAZOLE [Concomitant]
  4. LEVITRA [Concomitant]
  5. PAROXETINE HCL [Concomitant]
  6. METHYLPREDNISOLONE [Concomitant]
  7. CLOTRIMAZOLE/BETAMETH [Concomitant]
  8. LORAZEPAM [Concomitant]
  9. PAROXETINE [Concomitant]
  10. SILVER SULFA [Concomitant]
  11. LORAZEPAM [Concomitant]
  12. NEURONTIN [Concomitant]
  13. CLONAZEPAM [Concomitant]
  14. PREVACID [Concomitant]
  15. PAXIL [Concomitant]
  16. ATIVAN [Concomitant]
  17. CARDIZEM CD [Concomitant]
  18. ASPIRIN [Concomitant]

REACTIONS (11)
  - ANXIETY [None]
  - ATRIAL FIBRILLATION [None]
  - BACK PAIN [None]
  - BRADYARRHYTHMIA [None]
  - GASTROOESOPHAGEAL REFLUX DISEASE [None]
  - INTERVERTEBRAL DISC DEGENERATION [None]
  - MULTIPLE INJURIES [None]
  - NON-CARDIAC CHEST PAIN [None]
  - OVERDOSE [None]
  - PALPITATIONS [None]
  - PANIC REACTION [None]
